FAERS Safety Report 6154453-1 (Version None)
Quarter: 2009Q2

REPORT INFORMATION
  Report Type: 
  Country: None (occurrence: None)
  Receive Date: 20090414
  Receipt Date: 20090408
  Transmission Date: 20091009
  Serious: Yes (Life-Threatening)
  Sender: FDA-Public Use
  Company Number: SK-BRISTOL-MYERS SQUIBB COMPANY-14580138

PATIENT
  Age: 54 Year
  Sex: Female
  Weight: 58 kg

DRUGS (3)
  1. CISPLATIN [Suspect]
     Indication: NON-SMALL CELL LUNG CANCER
     Dosage: DAY 1 OF 21 DAY CYC LAST TAKEN ON 18MAR2009
     Route: 042
     Dates: start: 20090218
  2. CETUXIMAB [Suspect]
     Indication: NON-SMALL CELL LUNG CANCER
     Dosage: RECENT INFUSION : 25MAR2009 STRENGTH: 5MG/ML
     Route: 042
     Dates: start: 20090218
  3. GEMCITABINE HCL [Suspect]
     Indication: NON-SMALL CELL LUNG CANCER
     Dosage: DAY 1 AND 8 OF 21 DAY CYC RECENT INFUSION 25MAR2009
     Route: 042
     Dates: start: 20090218

REACTIONS (1)
  - NEUTROPENIA [None]
